FAERS Safety Report 25017534 (Version 1)
Quarter: 2025Q1

REPORT INFORMATION
  Report Type: Spontaneous
  Country: US (occurrence: US)
  Receive Date: 20250227
  Receipt Date: 20250227
  Transmission Date: 20250408
  Serious: Yes (Other)
  Sender: JOHNSON AND JOHNSON
  Company Number: US-JNJFOC-20250249220

PATIENT
  Sex: Female

DRUGS (3)
  1. XARELTO [Suspect]
     Active Substance: RIVAROXABAN
     Indication: Atrial fibrillation
     Route: 048
  2. XARELTO [Suspect]
     Active Substance: RIVAROXABAN
     Indication: Cerebrovascular accident prophylaxis
  3. ATORVASTATIN [Concomitant]
     Active Substance: ATORVASTATIN

REACTIONS (14)
  - Haematochezia [Unknown]
  - Gingival bleeding [Unknown]
  - Abdominal pain upper [Unknown]
  - Headache [Unknown]
  - Weight increased [Unknown]
  - Sneezing [Unknown]
  - Vision blurred [Unknown]
  - Tinnitus [Unknown]
  - Tremor [Unknown]
  - Balance disorder [Unknown]
  - Muscle spasms [Unknown]
  - Nausea [Unknown]
  - Dyspnoea [Unknown]
  - Dry eye [Unknown]
